FAERS Safety Report 6844917-7 (Version None)
Quarter: 2010Q3

REPORT INFORMATION
  Report Type: 
  Country: None (occurrence: None)
  Receive Date: 20100715
  Receipt Date: 20100706
  Transmission Date: 20110219
  Serious: Yes (Disabling)
  Sender: FDA-Public Use
  Company Number: FR-ELI_LILLY_AND_COMPANY-FR201007001164

PATIENT
  Sex: Female

DRUGS (6)
  1. ALIMTA [Suspect]
     Indication: BRONCHIAL CARCINOMA
     Dosage: 900 MG, PER CYCLE
     Route: 042
     Dates: start: 20091210, end: 20100120
  2. CISPLATIN [Concomitant]
     Dosage: 135 MG, PER CYCLE
     Route: 042
     Dates: start: 20091210, end: 20100120
  3. SOLU-MEDROL [Concomitant]
     Dosage: 120 MG, UNKNOWN
     Route: 042
     Dates: start: 20100120, end: 20100122
  4. ZOPHREN [Concomitant]
     Dosage: 8 MG, UNKNOWN
     Route: 042
     Dates: start: 20100120, end: 20100122
  5. LASIX [Concomitant]
     Dosage: 20 MG, UNKNOWN
     Route: 042
     Dates: start: 20100120, end: 20100120
  6. BIPRETERAX [Concomitant]
     Indication: HYPERTENSION
     Dosage: UNK, 2/D
     Route: 048

REACTIONS (1)
  - CEREBELLAR ATAXIA [None]
